FAERS Safety Report 4799655-1 (Version None)
Quarter: 2005Q4

REPORT INFORMATION
  Report Type: 
  Country: None (occurrence: None)
  Receive Date: 20051013
  Receipt Date: 20050929
  Transmission Date: 20060501
  Serious: Yes (Other)
  Sender: FDA-Public Use
  Company Number: GXKR2005CA01727

PATIENT
  Age: 68 Year
  Sex: Female

DRUGS (3)
  1. DEXAMETHASONE [Suspect]
     Indication: LABYRINTHITIS
     Dosage: 1 - DROPS IN THE LEFT EAR, TID
  2. TENORMIN [Concomitant]
  3. ASPIRIN [Concomitant]

REACTIONS (1)
  - TINNITUS [None]
